FAERS Safety Report 21808158 (Version 1)
Quarter: 2023Q1

REPORT INFORMATION
  Report Type: Spontaneous
  Country: US (occurrence: US)
  Receive Date: 20230103
  Receipt Date: 20230103
  Transmission Date: 20230418
  Serious: No
  Sender: FDA-Public Use
  Company Number: US-UROGEN PHARMA LTD.-2022-UGN-000128

PATIENT

DRUGS (5)
  1. JELMYTO [Suspect]
     Active Substance: MITOMYCIN
     Indication: Transitional cell cancer of the renal pelvis and ureter
     Dosage: 32 MILLIGRAM, (INSTILLATION)
     Dates: start: 20221103, end: 20221103
  2. JELMYTO [Suspect]
     Active Substance: MITOMYCIN
     Dosage: 32 MILLIGRAM, (INSTILLATION)
     Dates: start: 20221110, end: 20221110
  3. JELMYTO [Suspect]
     Active Substance: MITOMYCIN
     Dosage: UNK (INSTILLATION)
     Route: 065
     Dates: start: 20221123, end: 20221123
  4. JELMYTO [Suspect]
     Active Substance: MITOMYCIN
     Dosage: UNK (INSTILLATION)
     Route: 065
     Dates: start: 20221201, end: 20221201
  5. JELMYTO [Suspect]
     Active Substance: MITOMYCIN
     Dosage: UNK (INSTILLATION)
     Dates: start: 20221208, end: 20221208

REACTIONS (6)
  - Myalgia [Unknown]
  - Procedural complication [Unknown]
  - Product administered at inappropriate site [Unknown]
  - Neck pain [Unknown]
  - Pain in extremity [Unknown]
  - Flank pain [Recovered/Resolved]

NARRATIVE: CASE EVENT DATE: 20221101
